FAERS Safety Report 4536820-2 (Version None)
Quarter: 2004Q4

REPORT INFORMATION
  Report Type: 
  Country: None (occurrence: None)
  Receive Date: 20041220
  Receipt Date: 20041125
  Transmission Date: 20050328
  Serious: Yes (Death)
  Sender: FDA-Public Use
  Company Number: 20041100492

PATIENT
  Age: 51 Year
  Sex: Female

DRUGS (2)
  1. SUPRANE [Suspect]
     Indication: ANAESTHESIA
     Route: 055
     Dates: start: 20041115, end: 20041115
  2. SUPRANE [Suspect]
     Indication: ANAESTHESIA
     Route: 055
     Dates: start: 20041117, end: 20041117

REACTIONS (4)
  - HEPATOCELLULAR DAMAGE [None]
  - POST PROCEDURAL COMPLICATION [None]
  - SUTURE RELATED COMPLICATION [None]
  - THROMBOSIS [None]
